FAERS Safety Report 17787954 (Version 3)
Quarter: 2020Q3

REPORT INFORMATION
  Report Type: Report from Study
  Country: US (occurrence: US)
  Receive Date: 20200515
  Receipt Date: 20200915
  Transmission Date: 20201102
  Serious: No
  Sender: FDA-Public Use
  Company Number: US-SHIRE-US202016268

PATIENT
  Sex: Female

DRUGS (4)
  1. GATTEX [Suspect]
     Active Substance: TEDUGLUTIDE\WATER
     Indication: SHORT-BOWEL SYNDROME
     Dosage: 1 MILLIGRAM, 1X/DAY:QD
     Route: 058
     Dates: start: 202004
  2. GATTEX [Suspect]
     Active Substance: TEDUGLUTIDE\WATER
     Indication: SHORT-BOWEL SYNDROME
     Dosage: 1 MILLIGRAM, 1X/DAY:QD
     Route: 058
     Dates: start: 202004
  3. GATTEX [Suspect]
     Active Substance: TEDUGLUTIDE\WATER
     Indication: SHORT-BOWEL SYNDROME
     Dosage: 1 MILLIGRAM, 1X/DAY:QD
     Route: 058
     Dates: start: 202004
  4. GATTEX [Suspect]
     Active Substance: TEDUGLUTIDE\WATER
     Indication: SHORT-BOWEL SYNDROME
     Dosage: 1 MILLIGRAM, 1X/DAY:QD
     Route: 058
     Dates: start: 202004

REACTIONS (6)
  - Stoma site oedema [Unknown]
  - Abdominal discomfort [Unknown]
  - Abdominal pain upper [Recovered/Resolved]
  - Nausea [Recovered/Resolved]
  - Abdominal distension [Unknown]
  - Abdominal pain [Unknown]
